FAERS Safety Report 21061406 (Version 1)
Quarter: 2022Q3

REPORT INFORMATION
  Report Type: Spontaneous
  Country: CA (occurrence: CA)
  Receive Date: 20220709
  Receipt Date: 20220709
  Transmission Date: 20221026
  Serious: Yes (Other)
  Sender: FDA-Public Use
  Company Number: CA-TEVA-2022-CA-2052444

PATIENT
  Sex: Female

DRUGS (4)
  1. LOSARTAN [Suspect]
     Active Substance: LOSARTAN
     Indication: Hypertension
     Route: 065
  2. PERINDOPRIL [Suspect]
     Active Substance: PERINDOPRIL
     Indication: Hypertension
     Route: 065
  3. SPIRONOLACTONE [Suspect]
     Active Substance: SPIRONOLACTONE
     Indication: Hypertension
     Route: 065
  4. LASIX [Suspect]
     Active Substance: FUROSEMIDE
     Indication: Hypertension
     Route: 065

REACTIONS (4)
  - Oligohydramnios [Unknown]
  - Contraindicated product administered [Unknown]
  - Maternal exposure during pregnancy [Unknown]
  - Premature delivery [Unknown]
